FAERS Safety Report 5141355-2 (Version None)
Quarter: 2006Q4

REPORT INFORMATION
  Report Type: 
  Country: None (occurrence: None)
  Receive Date: 20061030
  Receipt Date: 20061030
  Transmission Date: 20070319
  Serious: No
  Sender: FDA-Public Use
  Company Number: None

PATIENT

DRUGS (2)
  1. TUCKS R TOPICAL STARCH HEMORROIDAL SUPPOSITORIES, PFIZER [Suspect]
  2. TUCKS(R) TOPICAL STARCH HEMORROIDAL SUPPOSITORIES,   PFIZER [Suspect]

REACTIONS (3)
  - CIRCUMSTANCE OR INFORMATION CAPABLE OF LEADING TO MEDICATION ERROR [None]
  - MEDICATION ERROR [None]
  - PHARMACEUTICAL PRODUCT COMPLAINT [None]
